FAERS Safety Report 17304123 (Version 3)
Quarter: 2020Q1

REPORT INFORMATION
  Report Type: Report from Study
  Country: US (occurrence: US)
  Receive Date: 20200122
  Receipt Date: 20200305
  Transmission Date: 20200409
  Serious: Yes (Hospitalization, Other)
  Sender: FDA-Public Use
  Company Number: US-EXELIXIS-XL18420026681

PATIENT

DRUGS (8)
  1. HYDROCORTISONE. [Concomitant]
     Active Substance: HYDROCORTISONE
  2. DIPHENOXYLATE/ATROPINE [Concomitant]
     Active Substance: ATROPINE\DIPHENOXYLATE
  3. MEGESTROL [Concomitant]
     Active Substance: MEGESTROL
  4. PYRIDOXINE HYDROCHLORIDE. [Concomitant]
     Active Substance: PYRIDOXINE HYDROCHLORIDE
  5. AMLODIPINE [Concomitant]
     Active Substance: AMLODIPINE BESYLATE
  6. XL184 [Suspect]
     Active Substance: CABOZANTINIB
     Indication: THYROID CANCER METASTATIC
     Dosage: 60 MG, QD
     Route: 048
     Dates: start: 20171019, end: 20191220
  7. LEVOTHYROXINE SODIUM. [Concomitant]
     Active Substance: LEVOTHYROXINE SODIUM
  8. XL184 [Suspect]
     Active Substance: CABOZANTINIB
     Dosage: 40 MG X 5 DAYS A WEEK
     Route: 048
     Dates: start: 20200106

REACTIONS (8)
  - Productive cough [Recovering/Resolving]
  - Decreased appetite [Recovering/Resolving]
  - Oropharyngeal pain [Recovering/Resolving]
  - Weight decreased [Recovering/Resolving]
  - Fatigue [Recovering/Resolving]
  - Rhinorrhoea [Recovering/Resolving]
  - Nasal septum perforation [Recovering/Resolving]
  - Vomiting [Recovering/Resolving]

NARRATIVE: CASE EVENT DATE: 20191213
